FAERS Safety Report 4845862-9 (Version None)
Quarter: 2005Q4

REPORT INFORMATION
  Report Type: 
  Country: None (occurrence: None)
  Receive Date: 20051128
  Receipt Date: 20050204
  Transmission Date: 20060501
  Serious: Yes (Hospitalization, Other)
  Sender: FDA-Public Use
  Company Number: 200510742BFR

PATIENT
  Age: 19 Month
  Sex: Female
  Weight: 11 kg

DRUGS (47)
  1. KOGENATE FS [Suspect]
     Indication: FACTOR VIII DEFICIENCY
     Dosage: SEE IMAGE
     Route: 042
     Dates: start: 20040516, end: 20040517
  2. KOGENATE FS [Suspect]
     Indication: FACTOR VIII DEFICIENCY
     Dosage: SEE IMAGE
     Route: 042
     Dates: start: 20040603, end: 20040605
  3. KOGENATE FS [Suspect]
     Indication: FACTOR VIII DEFICIENCY
     Dosage: SEE IMAGE
     Route: 042
     Dates: start: 20040929, end: 20041006
  4. KOGENATE FS [Suspect]
     Indication: FACTOR VIII DEFICIENCY
     Dosage: SEE IMAGE
     Route: 042
     Dates: start: 20041008, end: 20041015
  5. KOGENATE FS [Suspect]
     Indication: FACTOR VIII DEFICIENCY
     Dosage: SEE IMAGE
     Route: 042
     Dates: start: 20041013, end: 20041015
  6. KOGENATE FS [Suspect]
     Indication: FACTOR VIII DEFICIENCY
     Dosage: SEE IMAGE
     Route: 042
     Dates: start: 20041018, end: 20041029
  7. KOGENATE FS [Suspect]
     Indication: FACTOR VIII DEFICIENCY
     Dosage: SEE IMAGE
     Route: 042
     Dates: start: 20041101, end: 20041103
  8. KOGENATE FS [Suspect]
     Indication: FACTOR VIII DEFICIENCY
     Dosage: SEE IMAGE
     Route: 042
     Dates: start: 20041108, end: 20041115
  9. KOGENATE FS [Suspect]
     Indication: FACTOR VIII DEFICIENCY
     Dosage: SEE IMAGE
     Route: 042
     Dates: start: 20041117, end: 20041208
  10. KOGENATE FS [Suspect]
     Indication: FACTOR VIII DEFICIENCY
     Dosage: SEE IMAGE
     Route: 042
     Dates: start: 20041213, end: 20050105
  11. KOGENATE FS [Suspect]
     Indication: FACTOR VIII DEFICIENCY
     Dosage: SEE IMAGE
     Route: 042
     Dates: start: 20050119, end: 20050121
  12. KOGENATE FS [Suspect]
     Indication: FACTOR VIII DEFICIENCY
     Dosage: SEE IMAGE
     Route: 042
     Dates: start: 20050127, end: 20050129
  13. KOGENATE FS [Suspect]
     Indication: FACTOR VIII DEFICIENCY
     Dosage: SEE IMAGE
     Route: 042
     Dates: start: 20050202, end: 20050209
  14. KOGENATE FS [Suspect]
     Indication: FACTOR VIII DEFICIENCY
     Dosage: SEE IMAGE
     Route: 042
     Dates: start: 20031019
  15. KOGENATE FS [Suspect]
     Indication: FACTOR VIII DEFICIENCY
     Dosage: SEE IMAGE
     Route: 042
     Dates: start: 20031021
  16. KOGENATE FS [Suspect]
     Indication: FACTOR VIII DEFICIENCY
     Dosage: SEE IMAGE
     Route: 042
     Dates: start: 20031211
  17. KOGENATE FS [Suspect]
     Indication: FACTOR VIII DEFICIENCY
     Dosage: SEE IMAGE
     Route: 042
     Dates: start: 20040105
  18. KOGENATE FS [Suspect]
     Indication: FACTOR VIII DEFICIENCY
     Dosage: SEE IMAGE
     Route: 042
     Dates: start: 20040427
  19. KOGENATE FS [Suspect]
     Indication: FACTOR VIII DEFICIENCY
     Dosage: SEE IMAGE
     Route: 042
     Dates: start: 20040507
  20. KOGENATE FS [Suspect]
     Indication: FACTOR VIII DEFICIENCY
     Dosage: SEE IMAGE
     Route: 042
     Dates: start: 20040609
  21. KOGENATE FS [Suspect]
     Indication: FACTOR VIII DEFICIENCY
     Dosage: SEE IMAGE
     Route: 042
     Dates: start: 20040819
  22. KOGENATE FS [Suspect]
     Indication: FACTOR VIII DEFICIENCY
     Dosage: SEE IMAGE
     Route: 042
     Dates: start: 20040820
  23. KOGENATE FS [Suspect]
     Indication: FACTOR VIII DEFICIENCY
     Dosage: SEE IMAGE
     Route: 042
     Dates: start: 20040822
  24. KOGENATE FS [Suspect]
     Indication: FACTOR VIII DEFICIENCY
     Dosage: SEE IMAGE
     Route: 042
     Dates: start: 20041105
  25. KOGENATE FS [Suspect]
     Indication: FACTOR VIII DEFICIENCY
     Dosage: SEE IMAGE
     Route: 042
     Dates: start: 20050107
  26. KOGENATE FS [Suspect]
     Indication: FACTOR VIII DEFICIENCY
     Dosage: SEE IMAGE
     Route: 042
     Dates: start: 20050110
  27. KOGENATE FS [Suspect]
     Indication: FACTOR VIII DEFICIENCY
     Dosage: SEE IMAGE
     Route: 042
     Dates: start: 20050114
  28. KOGENATE FS [Suspect]
     Indication: FACTOR VIII DEFICIENCY
     Dosage: SEE IMAGE
     Route: 042
     Dates: start: 20050117
  29. KOGENATE FS [Suspect]
     Indication: FACTOR VIII DEFICIENCY
     Dosage: SEE IMAGE
     Route: 042
     Dates: start: 20050125
  30. KOGENATE FS [Suspect]
     Indication: FACTOR VIII DEFICIENCY
     Dosage: SEE IMAGE
     Route: 042
     Dates: start: 20050131
  31. KOGENATE FS [Suspect]
  32. KOGENATE FS [Suspect]
  33. KOGENATE FS [Suspect]
  34. KOGENATE FS [Suspect]
  35. KOGENATE FS [Suspect]
  36. KOGENATE FS [Suspect]
  37. KOGENATE FS [Suspect]
  38. KOGENATE FS [Suspect]
  39. KOGENATE FS [Suspect]
  40. KOGENATE FS [Suspect]
  41. KOGENATE FS [Suspect]
  42. KOGENATE FS [Suspect]
  43. KOGENATE FS [Suspect]
  44. KOGENATE FS [Suspect]
  45. KOGENATE FS [Suspect]
  46. KOGENATE FS [Suspect]
  47. NOVOSEVEN [Concomitant]

REACTIONS (2)
  - CATHETER PLACEMENT [None]
  - FACTOR VIII INHIBITION [None]
